FAERS Safety Report 9457217 (Version 1)
Quarter: 2013Q3

REPORT INFORMATION
  Report Type: Spontaneous
  Country: US (occurrence: US)
  Receive Date: 20130814
  Receipt Date: 20130814
  Transmission Date: 20140515
  Serious: No
  Sender: FDA-Public Use
  Company Number: US-009507513-1307USA009034

PATIENT
  Sex: Female

DRUGS (1)
  1. COSOPT PF [Suspect]
     Dosage: UNSPECIFIED/ ONE DROP IN EACH EYE, TWICE DAILY
     Route: 047

REACTIONS (3)
  - Eye pain [Unknown]
  - Drug dose omission [Unknown]
  - Product packaging quantity issue [Unknown]
